FAERS Safety Report 17917958 (Version 1)
Quarter: 2020Q2

REPORT INFORMATION
  Report Type: Spontaneous
  Country: None (occurrence: US)
  Receive Date: 20200619
  Receipt Date: 20200619
  Transmission Date: 20200714
  Serious: Yes (Hospitalization)
  Sender: FDA-Public Use
  Company Number: US-AKRON, INC.-2086283

PATIENT
  Age: 48 Year
  Sex: Male

DRUGS (1)
  1. LACTULOSE SOLUTION, USP 473ML [Suspect]
     Active Substance: LACTULOSE
     Route: 048

REACTIONS (3)
  - Ammonia increased [Recovered/Resolved]
  - Hospitalisation [Recovered/Resolved]
  - Drug ineffective [Recovered/Resolved]
